FAERS Safety Report 9721245 (Version 2)
Quarter: 2014Q1

REPORT INFORMATION
  Report Type: Spontaneous
  Country: US (occurrence: US)
  Receive Date: 20131129
  Receipt Date: 20140206
  Transmission Date: 20141002
  Serious: No
  Sender: FDA-Public Use
  Company Number: US-PFIZER INC-2013339716

PATIENT
  Age: 68 Year
  Sex: Female

DRUGS (2)
  1. ZOLOFT [Suspect]
     Dosage: UNK
  2. PROZAC [Suspect]
     Dosage: UNK

REACTIONS (4)
  - Drug hypersensitivity [Unknown]
  - Nightmare [Unknown]
  - Feeling abnormal [Unknown]
  - Drug intolerance [Unknown]
